FAERS Safety Report 12135078 (Version 2)
Quarter: 2018Q2

REPORT INFORMATION
  Report Type: Spontaneous
  Country: CH (occurrence: CH)
  Receive Date: 20160301
  Receipt Date: 20180420
  Transmission Date: 20180711
  Serious: Yes (Death)
  Sender: FDA-Public Use
  Company Number: CH-RARE DISEASE THERAPEUTICS, INC.-1048551

PATIENT
  Age: 39 Year
  Sex: Female

DRUGS (6)
  1. L-CARNITINE [Concomitant]
     Active Substance: LEVOCARNITINE
  2. HYDROXOCOBALAMIN [Concomitant]
     Active Substance: HYDROXOCOBALAMIN
     Route: 030
  3. BETAINE [Suspect]
     Active Substance: BETAINE
  4. FOLINIC ACID [Concomitant]
     Active Substance: LEUCOVORIN
  5. CYSTADANE [Suspect]
     Active Substance: BETAINE
     Indication: PRODUCT USED FOR UNKNOWN INDICATION
  6. HYDROXOCOBALAMIN [Concomitant]
     Active Substance: HYDROXOCOBALAMIN
     Route: 030

REACTIONS (1)
  - Sudden death [Fatal]
